FAERS Safety Report 4917240-5 (Version None)
Quarter: 2006Q1

REPORT INFORMATION
  Report Type: 
  Country: None (occurrence: None)
  Receive Date: 20060221
  Receipt Date: 20050113
  Transmission Date: 20060701
  Serious: Yes (Hospitalization, Other)
  Sender: FDA-Public Use
  Company Number: US-MERCK-0501USA02237

PATIENT
  Age: 81 Year
  Sex: Male
  Weight: 76 kg

DRUGS (2)
  1. VIOXX [Suspect]
     Indication: ARTHRITIS
     Route: 048
     Dates: start: 20020101, end: 20040901
  2. TYLENOL [Concomitant]
     Route: 065

REACTIONS (13)
  - ADVERSE EVENT [None]
  - APPENDICITIS [None]
  - CEREBROVASCULAR ACCIDENT [None]
  - CHONDROCALCINOSIS [None]
  - CHRONIC OBSTRUCTIVE PULMONARY DISEASE [None]
  - DIARRHOEA [None]
  - FALL [None]
  - FEMORAL ARTERIAL STENOSIS [None]
  - GOUT [None]
  - INTERMITTENT CLAUDICATION [None]
  - MYOCARDIAL INFARCTION [None]
  - NEUROLOGICAL SYMPTOM [None]
  - SKIN CANCER [None]
